FAERS Safety Report 6864794-8 (Version None)
Quarter: 2010Q3

REPORT INFORMATION
  Report Type: 
  Country: None (occurrence: None)
  Receive Date: 20100721
  Receipt Date: 20080404
  Transmission Date: 20110219
  Serious: No
  Sender: FDA-Public Use
  Company Number: US-PFIZER INC-2008030943

PATIENT
  Sex: Male
  Weight: 77.3 kg

DRUGS (3)
  1. CHANTIX [Suspect]
     Indication: SMOKING CESSATION THERAPY
     Dates: start: 20080402
  2. TAMSULOSIN HYDROCHLORIDE [Concomitant]
  3. XANAX [Concomitant]
     Indication: DEPRESSION

REACTIONS (6)
  - BEDRIDDEN [None]
  - EMOTIONAL DISORDER [None]
  - MALAISE [None]
  - NAUSEA [None]
  - PYREXIA [None]
  - TINNITUS [None]
